FAERS Safety Report 7684258-1 (Version None)
Quarter: 2011Q3

REPORT INFORMATION
  Report Type: 
  Country: None (occurrence: None)
  Receive Date: 20110815
  Receipt Date: 20110803
  Transmission Date: 20111222
  Serious: Yes (Hospitalization)
  Sender: FDA-Public Use
  Company Number: US-CELGENEUS-163-21660-11072017

PATIENT
  Age: 56 Year
  Sex: Male

DRUGS (2)
  1. ABRAXANE [Suspect]
     Route: 041
     Dates: start: 20110519, end: 20110701
  2. CETUXIMAB [Suspect]
     Route: 065
     Dates: start: 20110519, end: 20110707

REACTIONS (4)
  - DEHYDRATION [None]
  - DYSPHAGIA [None]
  - NAUSEA [None]
  - VOMITING [None]
